FAERS Safety Report 8383219-7 (Version None)
Quarter: 2012Q2

REPORT INFORMATION
  Report Type: 
  Country: None (occurrence: None)
  Receive Date: 20120524
  Receipt Date: 20120522
  Transmission Date: 20120825
  Serious: Yes (Other)
  Sender: FDA-Public Use
  Company Number: JP-PFIZER INC-2012118685

PATIENT
  Sex: Female

DRUGS (3)
  1. ADALAT [Concomitant]
     Dosage: UNK
  2. CELEBREX [Suspect]
     Dosage: UNK
     Route: 048
  3. ASPIRIN [Concomitant]
     Dosage: UNK

REACTIONS (1)
  - RETINAL HAEMORRHAGE [None]
